FAERS Safety Report 6144978-7 (Version None)
Quarter: 2009Q2

REPORT INFORMATION
  Report Type: 
  Country: None (occurrence: None)
  Receive Date: 20090406
  Receipt Date: 20090327
  Transmission Date: 20091009
  Serious: Yes (Hospitalization)
  Sender: FDA-Public Use
  Company Number: US-AVENTIS-200912384US

PATIENT
  Sex: Female

DRUGS (3)
  1. ALLEGRA D 24 HOUR [Suspect]
     Dosage: DOSE: UNK
     Route: 048
  2. ALLEGRA D 24 HOUR [Suspect]
     Indication: URTICARIA
     Dosage: DOSE: UNK
     Route: 048
  3. UNKNOWN DRUG [Concomitant]
     Dosage: DOSE: UNK

REACTIONS (6)
  - ABDOMINAL DISCOMFORT [None]
  - ABDOMINAL PAIN UPPER [None]
  - ANOREXIA [None]
  - INTESTINAL OBSTRUCTION [None]
  - MEDICATION RESIDUE [None]
  - WEIGHT DECREASED [None]
